FAERS Safety Report 19027882 (Version 2)
Quarter: 2021Q2

REPORT INFORMATION
  Report Type: Report from Study
  Country: US (occurrence: US)
  Receive Date: 20210318
  Receipt Date: 20210419
  Transmission Date: 20210717
  Serious: Yes (Hospitalization, Other)
  Sender: FDA-Public Use
  Company Number: US-JNJFOC-A-NJ2017-163865

PATIENT
  Age: 85 Year
  Sex: Female
  Weight: 86.62 kg

DRUGS (2)
  1. OPSUMIT [Suspect]
     Active Substance: MACITENTAN
     Indication: PULMONARY ARTERIAL HYPERTENSION
     Dosage: 10 MG, QD
     Route: 048
     Dates: start: 20150702
  2. OPSUMIT [Suspect]
     Active Substance: MACITENTAN
     Indication: PULMONARY ARTERIAL HYPERTENSION
     Route: 048

REACTIONS (10)
  - Fluid retention [Recovered/Resolved]
  - Arthropathy [Unknown]
  - Dyspnoea [Recovered/Resolved]
  - Weight increased [Recovered/Resolved]
  - Living in residential institution [Unknown]
  - Arthralgia [Unknown]
  - Knee arthroplasty [Unknown]
  - Cardiac failure chronic [Recovered/Resolved]
  - Pulmonary hypertension [Recovered/Resolved]
  - Arthritis [Unknown]

NARRATIVE: CASE EVENT DATE: 20171129
